FAERS Safety Report 16679107 (Version 1)
Quarter: 2019Q3

REPORT INFORMATION
  Report Type: Spontaneous
  Country: CN (occurrence: CN)
  Receive Date: 20190807
  Receipt Date: 20190807
  Transmission Date: 20191004
  Serious: Yes (Disabling)
  Sender: FDA-Public Use
  Company Number: CN-BAXTER-2019BAX015013

PATIENT
  Age: 46 Year
  Sex: Female
  Weight: 64.5 kg

DRUGS (7)
  1. KAIFEN [FLURBIPROFEN AXETIL] [Suspect]
     Active Substance: FLURBIPROFEN AXETIL
     Indication: ANALGESIC THERAPY
  2. KAIFEN [FLURBIPROFEN AXETIL] [Suspect]
     Active Substance: FLURBIPROFEN AXETIL
     Indication: ANTIINFLAMMATORY THERAPY
  3. METRONIDAZOLE AND SODIUM CHLORIDE INJECTION [Suspect]
     Active Substance: METRONIDAZOLE\SODIUM CHLORIDE
     Indication: APPENDICITIS
     Route: 041
     Dates: start: 20190710, end: 20190721
  4. KAIFEN [FLURBIPROFEN AXETIL] [Suspect]
     Active Substance: FLURBIPROFEN AXETIL
     Indication: APPENDICITIS
     Route: 041
     Dates: start: 20190710, end: 20190714
  5. RABEPRAZOLE SODIUM. [Suspect]
     Active Substance: RABEPRAZOLE SODIUM
     Indication: APPENDICITIS
     Route: 041
     Dates: start: 20190710, end: 20190716
  6. AZTREONAM. [Suspect]
     Active Substance: AZTREONAM
     Indication: APPENDICITIS
     Route: 041
     Dates: start: 20190710, end: 20190715
  7. RABEPRAZOLE SODIUM. [Suspect]
     Active Substance: RABEPRAZOLE SODIUM
     Indication: PROPHYLAXIS

REACTIONS (1)
  - Hepatic function abnormal [Recovering/Resolving]

NARRATIVE: CASE EVENT DATE: 20190715
